FAERS Safety Report 4932178-5 (Version None)
Quarter: 2006Q1

REPORT INFORMATION
  Report Type: 
  Country: None (occurrence: None)
  Receive Date: 20060228
  Receipt Date: 20060203
  Transmission Date: 20060701
  Serious: Yes (Hospitalization)
  Sender: FDA-Public Use
  Company Number: USA0507103272

PATIENT
  Age: 51 Year
  Sex: Female

DRUGS (8)
  1. FORTEO [Suspect]
     Indication: OSTEOPOROSIS
     Dosage: 20 UG, DAILY (1/D)
     Dates: start: 20050605, end: 20050704
  2. FORTEO PEN, 250MCG/ML (3ML) (FORTEO PEN 250 MCG/ML (3ML)) PEN, DISPOSA [Concomitant]
  3. LOVASTATIN [Concomitant]
  4. FLUDROCORTISONE ACETATE [Concomitant]
  5. HYDROCHLOROTHIAZIDE [Concomitant]
  6. HYDROCORTISONE [Concomitant]
  7. SYNTHROID [Concomitant]
  8. BROMOCRIPTINE MESYLATE [Concomitant]

REACTIONS (19)
  - DEHYDRATION [None]
  - DEPRESSED LEVEL OF CONSCIOUSNESS [None]
  - DYSPEPSIA [None]
  - FALL [None]
  - FATIGUE [None]
  - HAEMATOCRIT INCREASED [None]
  - HAEMOGLOBIN INCREASED [None]
  - LOSS OF CONSCIOUSNESS [None]
  - MALAISE [None]
  - MENTAL IMPAIRMENT [None]
  - NASOPHARYNGITIS [None]
  - NAUSEA [None]
  - ORTHOSTATIC HYPOTENSION [None]
  - PAIN IN EXTREMITY [None]
  - PHARMACEUTICAL PRODUCT COMPLAINT [None]
  - PYREXIA [None]
  - SKIN REACTION [None]
  - SYNCOPE [None]
  - VOMITING [None]
